FAERS Safety Report 18902601 (Version 4)
Quarter: 2022Q2

REPORT INFORMATION
  Report Type: Spontaneous
  Country: JP (occurrence: JP)
  Receive Date: 20210217
  Receipt Date: 20220623
  Transmission Date: 20220721
  Serious: Yes (Death, Hospitalization, Other)
  Sender: FDA-Public Use
  Company Number: JP-AUROBINDO-AUR-APL-2021-006225

PATIENT
  Age: 80 Year
  Sex: Male

DRUGS (2)
  1. FOLOTYN [Suspect]
     Active Substance: PRALATREXATE
     Indication: Peripheral T-cell lymphoma unspecified
     Dosage: 20 MILLIGRAM/SQ. METER
     Route: 042
     Dates: start: 2018, end: 202011
  2. FOLOTYN [Suspect]
     Active Substance: PRALATREXATE
     Dosage: 20 MILLIGRAM/SQ. METER
     Route: 042
     Dates: start: 202012, end: 202101

REACTIONS (8)
  - Hepatic cirrhosis [Fatal]
  - Ascites [Recovering/Resolving]
  - Hepatic atrophy [Unknown]
  - Blood bilirubin increased [Not Recovered/Not Resolved]
  - Abdominal distension [Unknown]
  - Anaemia [Recovered/Resolved]
  - Neutrophil count decreased [Recovered/Resolved]
  - Platelet count decreased [Recovered/Resolved]

NARRATIVE: CASE EVENT DATE: 20201201
